FAERS Safety Report 9752083 (Version 1)
Quarter: 2013Q4

REPORT INFORMATION
  Report Type: Report from Study
  Country: US (occurrence: US)
  Receive Date: 20131213
  Receipt Date: 20131213
  Transmission Date: 20140711
  Serious: Yes (Hospitalization)
  Sender: FDA-Public Use
  Company Number: PHEH2013US025541

PATIENT
  Age: 78 Year
  Sex: Female
  Weight: 129 kg

DRUGS (1)
  1. SANDOSTATIN LAR [Suspect]
     Dosage: 30 MG, EVERY MONTH
     Route: 030
     Dates: start: 20130715

REACTIONS (1)
  - Localised infection [Unknown]
